FAERS Safety Report 24196705 (Version 21)
Quarter: 2025Q1

REPORT INFORMATION
  Report Type: Spontaneous
  Country: CA (occurrence: CA)
  Receive Date: 20240810
  Receipt Date: 20250228
  Transmission Date: 20250409
  Serious: Yes (Other)
  Sender: CELLTRION
  Company Number: CA-PFIZER INC-202400230162

PATIENT

DRUGS (8)
  1. INFLECTRA [Suspect]
     Active Substance: INFLIXIMAB-DYYB
     Indication: Crohn^s disease
     Route: 042
     Dates: start: 20240524
  2. INFLECTRA [Suspect]
     Active Substance: INFLIXIMAB-DYYB
     Route: 042
     Dates: start: 20240703
  3. INFLECTRA [Suspect]
     Active Substance: INFLIXIMAB-DYYB
     Route: 042
     Dates: start: 20240802
  4. INFLECTRA [Suspect]
     Active Substance: INFLIXIMAB-DYYB
     Route: 042
     Dates: start: 20240830
  5. INFLECTRA [Suspect]
     Active Substance: INFLIXIMAB-DYYB
     Route: 042
     Dates: start: 20241022
  6. DEXILANT [Concomitant]
     Active Substance: DEXLANSOPRAZOLE
  7. NEXIUM I.V. [Concomitant]
     Active Substance: ESOMEPRAZOLE SODIUM
  8. SUCRALFATE [Concomitant]
     Active Substance: SUCRALFATE

REACTIONS (44)
  - Condition aggravated [Not Recovered/Not Resolved]
  - Immunodeficiency [Unknown]
  - Fistula [Not Recovered/Not Resolved]
  - Small intestinal haemorrhage [Unknown]
  - Pneumonia [Not Recovered/Not Resolved]
  - Pulmonary oedema [Not Recovered/Not Resolved]
  - Pertussis [Recovered/Resolved]
  - Fistula discharge [Unknown]
  - Perineal abscess [Unknown]
  - Presyncope [Unknown]
  - Nerve compression [Unknown]
  - Tooth disorder [Not Recovered/Not Resolved]
  - Post procedural fever [Unknown]
  - Procedural pain [Unknown]
  - Post procedural discharge [Unknown]
  - Drug ineffective [Unknown]
  - Therapeutic product effect decreased [Unknown]
  - Defaecation urgency [Not Recovered/Not Resolved]
  - Post procedural complication [Unknown]
  - Abscess [Recovered/Resolved]
  - Anal fissure [Recovered/Resolved]
  - Infusion site pain [Unknown]
  - Infusion site bruising [Unknown]
  - Arthralgia [Recovered/Resolved]
  - Dehydration [Unknown]
  - Cough [Recovered/Resolved]
  - Rhinorrhoea [Recovered/Resolved]
  - Influenza like illness [Not Recovered/Not Resolved]
  - Peripheral swelling [Unknown]
  - Chest pain [Unknown]
  - Night sweats [Unknown]
  - Chest discomfort [Unknown]
  - Anxiety [Not Recovered/Not Resolved]
  - Wheezing [Unknown]
  - Sleep disorder due to a general medical condition [Unknown]
  - Rash [Recovered/Resolved]
  - Peripheral swelling [Recovered/Resolved]
  - Sweating fever [Recovered/Resolved]
  - Heart rate decreased [Recovered/Resolved]
  - COVID-19 [Unknown]
  - Urinary tract infection bacterial [Unknown]
  - Hypoaesthesia [Unknown]
  - Gait disturbance [Unknown]
  - Weight decreased [Unknown]

NARRATIVE: CASE EVENT DATE: 20240101
